FAERS Safety Report 8132736-3 (Version None)
Quarter: 2012Q1

REPORT INFORMATION
  Report Type: 
  Country: None (occurrence: None)
  Receive Date: 20120207
  Receipt Date: 20120131
  Transmission Date: 20120608
  Serious: Yes (Hospitalization)
  Sender: FDA-Public Use
  Company Number: 2012010113

PATIENT
  Age: 64 Year
  Sex: Female

DRUGS (2)
  1. MEPROBAMATE [Suspect]
     Indication: MUSCLE SPASMS
     Dosage: INHALATION
     Route: 055
  2. QUININE SULFATE [Suspect]
     Indication: MUSCLE SPASMS
     Dosage: INHALATION
     Route: 055

REACTIONS (8)
  - RHONCHI [None]
  - MUSCLE SPASMS [None]
  - OROPHARYNGEAL PAIN [None]
  - BRONCHITIS [None]
  - COUGH [None]
  - SALIVARY HYPERSECRETION [None]
  - DYSPNOEA [None]
  - ACCIDENTAL EXPOSURE [None]
